FAERS Safety Report 9514304 (Version 2)
Quarter: 2013Q3

REPORT INFORMATION
  Report Type: Spontaneous
  Country: US (occurrence: US)
  Receive Date: 20130911
  Receipt Date: 20130911
  Transmission Date: 20140515
  Serious: Yes (Other)
  Sender: FDA-Public Use
  Company Number: US-AMGEN-USASP2013062216

PATIENT
  Age: 49 Year
  Sex: Female

DRUGS (5)
  1. ENBREL [Suspect]
     Indication: RHEUMATOID ARTHRITIS
     Dosage: 50 MG, QWK
     Route: 058
     Dates: start: 2009
  2. TRAMADOL HCL [Concomitant]
     Dosage: 50 MG, UNK
  3. SYNTHYROID [Concomitant]
     Dosage: 50 MUG, UNK
  4. BETAMETH DIPROPIONATE [Concomitant]
     Dosage: 0.05 %, UNK
  5. NORCO [Concomitant]
     Dosage: 5-325 MG, UNK

REACTIONS (6)
  - Injection site abscess [Recovering/Resolving]
  - Skin exfoliation [Recovered/Resolved]
  - Skin discolouration [Not Recovered/Not Resolved]
  - Injection site erythema [Not Recovered/Not Resolved]
  - Injection site pustule [Not Recovered/Not Resolved]
  - Injection site swelling [Not Recovered/Not Resolved]
